FAERS Safety Report 13067867 (Version 1)
Quarter: 2016Q4

REPORT INFORMATION
  Report Type: Spontaneous
  Country: US (occurrence: US)
  Receive Date: 20161227
  Receipt Date: 20161227
  Transmission Date: 20170207
  Serious: Yes (Other)
  Sender: FDA-Public Use
  Company Number: None

PATIENT
  Sex: Female

DRUGS (1)
  1. CAPECITABINE 500 MG ACCORD HEALTH [Suspect]
     Active Substance: CAPECITABINE
     Indication: METASTASES TO LIVER
     Dosage: 4 TABLETS BID DAYS 1-14, 7 DAYS OFF PO
     Route: 048
     Dates: start: 20161019

REACTIONS (2)
  - Amnesia [None]
  - Emotional disorder [None]
